FAERS Safety Report 4815503-5 (Version None)
Quarter: 2005Q4

REPORT INFORMATION
  Report Type: 
  Country: None (occurrence: None)
  Receive Date: 20051031
  Receipt Date: 20051019
  Transmission Date: 20060501
  Serious: Yes (Hospitalization)
  Sender: FDA-Public Use
  Company Number: US-BRACCO-BDI-007657

PATIENT
  Age: 55 Year
  Sex: Female
  Weight: 95 kg

DRUGS (2)
  1. PROHANCE                           /01180801/ [Suspect]
     Indication: HEADACHE
     Route: 042
     Dates: start: 20051018, end: 20051018
  2. PROHANCE                           /01180801/ [Suspect]
     Indication: NUCLEAR MAGNETIC RESONANCE IMAGING BRAIN
     Route: 042
     Dates: start: 20051018, end: 20051018

REACTIONS (6)
  - CHEST PAIN [None]
  - DYSPNOEA [None]
  - ELECTROCARDIOGRAM ABNORMAL [None]
  - HYPOTENSION [None]
  - PROCEDURAL COMPLICATION [None]
  - SYNCOPE VASOVAGAL [None]
